FAERS Safety Report 11943445 (Version 1)
Quarter: 2016Q1

REPORT INFORMATION
  Report Type: Other
  Country: NL (occurrence: NL)
  Receive Date: 20160125
  Receipt Date: 20160125
  Transmission Date: 20160526
  Serious: Yes (Disabling, Other)
  Sender: FDA-Public Use
  Company Number: NL-ACTELION-A-CH2016-130206

PATIENT
  Age: 49 Year
  Sex: Female

DRUGS (12)
  1. EPOPROSTENOL. [Concomitant]
     Active Substance: EPOPROSTENOL
     Dosage: 1000 U, QD
  2. MYCOPHENOLATE MOFETIL. [Concomitant]
     Active Substance: MYCOPHENOLATE MOFETIL
  3. TRACLEER [Suspect]
     Active Substance: BOSENTAN
     Indication: PULMONARY HYPERTENSION
     Dosage: 250 MG, QD
     Route: 048
  4. ACENOCOUMAROL [Concomitant]
     Active Substance: ACENOCOUMAROL
  5. IMIGLUCERASE [Concomitant]
     Active Substance: IMIGLUCERASE
     Dosage: 30 UNK, Q2WEEK
  6. SPIRONOLACTONE. [Concomitant]
     Active Substance: SPIRONOLACTONE
     Dosage: 50 MG, QD
  7. FUROSEMIDE. [Concomitant]
     Active Substance: FUROSEMIDE
     Dosage: 40 MG, BID
  8. TACROLIMUS. [Concomitant]
     Active Substance: TACROLIMUS
  9. PREDNISOLONE. [Concomitant]
     Active Substance: PREDNISOLONE
  10. SILDENAFIL. [Concomitant]
     Active Substance: SILDENAFIL
     Dosage: 10 MG, QD
  11. DIGOXIN. [Concomitant]
     Active Substance: DIGOXIN
     Dosage: 0.25 MG, QD
  12. NITROGLYCERIN. [Concomitant]
     Active Substance: NITROGLYCERIN
     Dosage: 0.4 MG, PRN

REACTIONS (13)
  - Lung transplant [Unknown]
  - Glomerular filtration rate decreased [Unknown]
  - Complications of transplanted kidney [Unknown]
  - Urinary tract infection [Unknown]
  - No therapeutic response [Unknown]
  - Renal transplant [Unknown]
  - Renal impairment [Unknown]
  - Osteoporotic fracture [Unknown]
  - Pulmonary embolism [Unknown]
  - Pelvic fracture [Unknown]
  - Biopsy kidney [Unknown]
  - Human polyomavirus infection [Unknown]
  - Nephropathy toxic [Unknown]

NARRATIVE: CASE EVENT DATE: 200905
